FAERS Safety Report 7169898-0 (Version None)
Quarter: 2010Q4

REPORT INFORMATION
  Report Type: 
  Country: None (occurrence: None)
  Receive Date: 20101217
  Receipt Date: 20101209
  Transmission Date: 20110411
  Serious: Yes (Hospitalization)
  Sender: FDA-Public Use
  Company Number: US-PERRIGO-10US015465

PATIENT
  Sex: Male
  Weight: 181.41 kg

DRUGS (12)
  1. NAPROXEN SODIUM [Suspect]
     Indication: MUSCULOSKELETAL CHEST PAIN
     Dosage: 880 MG, QD
     Route: 048
     Dates: start: 20101126, end: 20101127
  2. NAPROXEN SODIUM [Suspect]
     Dosage: 880 MG, QD
     Route: 048
     Dates: start: 20101128, end: 20101129
  3. NAPROXEN SODIUM [Suspect]
     Dosage: 440 MG, SINGLE
     Route: 048
     Dates: start: 20101201, end: 20101201
  4. UNSPECIFIED NARCOTICS [Suspect]
     Indication: MUSCULOSKELETAL CHEST PAIN
     Dosage: UNK
     Route: 048
     Dates: start: 20101121, end: 20101126
  5. INSULIN [Concomitant]
     Indication: DIABETES MELLITUS
     Dosage: 4 UNITS, AT NIGHT TIME
     Route: 058
  6. METFORMIN [Concomitant]
     Indication: DIABETES MELLITUS
     Dosage: 1000 MG, BID
     Route: 048
  7. METOPROLOL [Concomitant]
     Indication: HYPERTENSION
     Dosage: 50 MG, BID
     Route: 048
  8. GLIPIZIDE [Concomitant]
     Indication: DIABETES MELLITUS
     Dosage: 10 MG, BID
     Route: 048
  9. LISINOPRIL + HIDROCLOROTIAZIDA [Concomitant]
     Indication: HYPERTENSION
     Dosage: 20/12.5, BID
     Route: 048
  10. ACTOS [Concomitant]
     Indication: DIABETES MELLITUS
     Dosage: 10 MG, QD
     Route: 048
  11. ZETIA [Concomitant]
     Indication: BLOOD CHOLESTEROL INCREASED
     Dosage: 10 MG, QD
     Route: 048
  12. LIPITOR [Concomitant]
     Indication: BLOOD CHOLESTEROL INCREASED
     Dosage: 80 MG, QD
     Route: 048

REACTIONS (2)
  - HALLUCINATION [None]
  - INCORRECT DOSE ADMINISTERED [None]
